FAERS Safety Report 9034838 (Version 1)
Quarter: 2013Q1

REPORT INFORMATION
  Report Type: Spontaneous
  Country: US (occurrence: None)
  Receive Date: 20130116
  Receipt Date: 20130116
  Transmission Date: 20140127
  Serious: Yes (Hospitalization)
  Sender: FDA-Public Use
  Company Number: None

PATIENT
  Age: 61 Year
  Sex: Male
  Weight: 67.6 kg

DRUGS (2)
  1. FUROSEMIDE [Suspect]
     Indication: RENAL DISORDER
     Route: 048
     Dates: start: 20120329, end: 20130111
  2. SPIRONOLACTONE [Suspect]
     Route: 048
     Dates: start: 20121108, end: 20130111

REACTIONS (2)
  - Renal failure acute [None]
  - Hyperkalaemia [None]
